FAERS Safety Report 8237693-7 (Version None)
Quarter: 2012Q1

REPORT INFORMATION
  Report Type: 
  Country: None (occurrence: None)
  Receive Date: 20120327
  Receipt Date: 20120316
  Transmission Date: 20120608
  Serious: Yes (Hospitalization)
  Sender: FDA-Public Use
  Company Number: US-ACTELION-A-US2012-62704

PATIENT

DRUGS (3)
  1. TRACLEER [Suspect]
     Indication: PULMONARY ARTERIAL HYPERTENSION
     Dosage: UNK
     Route: 048
     Dates: start: 20111228, end: 20120315
  2. ADCIRCA [Concomitant]
  3. REVATIO [Concomitant]

REACTIONS (9)
  - WEIGHT DECREASED [None]
  - NAUSEA [None]
  - LIVER INJURY [None]
  - HYPERSENSITIVITY [None]
  - ABDOMINAL DISTENSION [None]
  - OROPHARYNGEAL PAIN [None]
  - FLUID RETENTION [None]
  - VOMITING [None]
  - JOINT SWELLING [None]
